FAERS Safety Report 21531284 (Version 1)
Quarter: 2022Q4

REPORT INFORMATION
  Report Type: Spontaneous
  Country: US (occurrence: None)
  Receive Date: 20221031
  Receipt Date: 20221031
  Transmission Date: 20230113
  Serious: Yes (Hospitalization, Disabling, Other)
  Sender: FDA-Public Use
  Company Number: None

PATIENT
  Age: 16 Year
  Sex: Male
  Weight: 57.15 kg

DRUGS (1)
  1. MAGNESIUM CITRATE SALINE LAXATIVE [Suspect]
     Active Substance: MAGNESIUM CITRATE
     Indication: Constipation
     Route: 048

REACTIONS (6)
  - Nausea [None]
  - Vomiting [None]
  - Abdominal pain upper [None]
  - Diarrhoea [None]
  - Recalled product administered [None]
  - Gastritis [None]

NARRATIVE: CASE EVENT DATE: 20220608
